FAERS Safety Report 5505294-7 (Version None)
Quarter: 2007Q4

REPORT INFORMATION
  Report Type: 
  Country: None (occurrence: None)
  Receive Date: 20071102
  Receipt Date: 20071022
  Transmission Date: 20080405
  Serious: Yes (Death)
  Sender: FDA-Public Use
  Company Number: BE-ROCHE-527060

PATIENT

DRUGS (1)
  1. XELODA [Suspect]
     Indication: DRUG USE FOR UNKNOWN INDICATION
     Dosage: DOSE TAKEN FOR 14 DAYS FOLLOWED BY A 7 DAY REST PERIOD.
     Route: 048

REACTIONS (2)
  - INTESTINAL ISCHAEMIA [None]
  - SEPSIS [None]
